FAERS Safety Report 22341994 (Version 1)
Quarter: 2023Q2

REPORT INFORMATION
  Report Type: Spontaneous
  Country: US (occurrence: US)
  Receive Date: 20230518
  Receipt Date: 20230518
  Transmission Date: 20230722
  Serious: No
  Sender: FDA-Public Use
  Company Number: US-drreddys-SPO/USA/23/0164390

PATIENT
  Age: 22 Year
  Sex: Female

DRUGS (3)
  1. ACCUTANE [Suspect]
     Active Substance: ISOTRETINOIN
     Indication: Acne
     Dosage: RMA ISSUE DATES: 20 MARCH 2023 02:33:18 PM
  2. ACCUTANE [Suspect]
     Active Substance: ISOTRETINOIN
     Dosage: RMA ISSUE DATES: 21 FEBRUARY 2023 11:22:32 AM, 24 JANUARY 2023 11:15:33 AM, 27 DECEMBER 2022 03:04:3
  3. ACCUTANE [Suspect]
     Active Substance: ISOTRETINOIN
     Dosage: RMA ISSUE DATES: 23 NOVEMBER 2022 10:16:20 AM

REACTIONS (1)
  - Treatment noncompliance [Unknown]
